FAERS Safety Report 12329069 (Version 3)
Quarter: 2016Q2

REPORT INFORMATION
  Report Type: Spontaneous
  Country: JP (occurrence: JP)
  Receive Date: 20160503
  Receipt Date: 20160607
  Transmission Date: 20160815
  Serious: Yes (Other)
  Sender: FDA-Public Use
  Company Number: JP-ABBVIE-16P-087-1616538-00

PATIENT
  Age: 74 Year
  Sex: Male
  Weight: 67 kg

DRUGS (9)
  1. VIEKIRAX [Suspect]
     Active Substance: OMBITASVIR\PARITAPREVIR\RITONAVIR
     Indication: CHRONIC HEPATITIS C
     Dosage: 2 DOSAGE FORMS DAILY
     Route: 048
     Dates: start: 20160316, end: 20160426
  2. ATELEC [Interacting]
     Active Substance: CILNIDIPINE
     Route: 048
     Dates: start: 20160429, end: 20160502
  3. ATELEC [Interacting]
     Active Substance: CILNIDIPINE
     Indication: HYPERTENSION
     Route: 048
  4. LASIX [Suspect]
     Active Substance: FUROSEMIDE
     Indication: HYPERTENSION
     Route: 048
     Dates: start: 20160316, end: 20160419
  5. EZETIMIBE. [Concomitant]
     Active Substance: EZETIMIBE
     Indication: HYPERLIPIDAEMIA
     Route: 048
     Dates: start: 20160302, end: 20160426
  6. OLMETEC [Suspect]
     Active Substance: OLMESARTAN MEDOXOMIL
     Indication: HYPERTENSION
     Route: 048
     Dates: end: 20160426
  7. ATELEC [Interacting]
     Active Substance: CILNIDIPINE
     Route: 048
     Dates: start: 201603, end: 20160426
  8. GLIMEPIRIDE. [Concomitant]
     Active Substance: GLIMEPIRIDE
     Indication: DIABETES MELLITUS
     Route: 048
     Dates: end: 20160426
  9. CILNIDIPINE [Concomitant]
     Active Substance: CILNIDIPINE
     Indication: PRODUCT USED FOR UNKNOWN INDICATION
     Dates: start: 20160302, end: 20160426

REACTIONS (5)
  - Blood potassium increased [Recovering/Resolving]
  - Drug interaction [Unknown]
  - Glomerular filtration rate decreased [Not Recovered/Not Resolved]
  - Oedema [Recovering/Resolving]
  - Cardiomegaly [Recovering/Resolving]

NARRATIVE: CASE EVENT DATE: 2016
